FAERS Safety Report 8536919-X (Version None)
Quarter: 2012Q3

REPORT INFORMATION
  Report Type: 
  Country: None (occurrence: None)
  Receive Date: 20120725
  Receipt Date: 20120723
  Transmission Date: 20120928
  Serious: Yes (Death, Hospitalization)
  Sender: FDA-Public Use
  Company Number: PH-B.I. PHARMACEUTICALS,INC./RIDGEFIELD-2012-CS-01070RP

PATIENT
  Age: 60 Year
  Sex: Male

DRUGS (1)
  1. PRADAXA [Suspect]
     Indication: CEREBROVASCULAR ACCIDENT PROPHYLAXIS
     Dosage: 220 MG
     Route: 048
     Dates: start: 20110901, end: 20120601

REACTIONS (2)
  - MYOCARDIAL INFARCTION [None]
  - GASTROOESOPHAGEAL REFLUX DISEASE [None]
